FAERS Safety Report 16854938 (Version 1)
Quarter: 2019Q3

REPORT INFORMATION
  Report Type: Spontaneous
  Country: FR (occurrence: FR)
  Receive Date: 20190926
  Receipt Date: 20190926
  Transmission Date: 20191005
  Serious: Yes (Other)
  Sender: FDA-Public Use
  Company Number: FR-ROCHE-2412296

PATIENT
  Age: 47 Year
  Sex: Female
  Weight: 58 kg

DRUGS (9)
  1. SOLUPRED [PREDNISOLONE METASULFOBENZOATE SODIUM] [Concomitant]
     Active Substance: PREDNISOLONE SODIUM METAZOATE
     Route: 065
  2. ANTACIDS, OTHER COMBINATIONS [Concomitant]
     Active Substance: ANTACIDS NOS
  3. KEPPRA [Concomitant]
     Active Substance: LEVETIRACETAM
     Route: 065
  4. URBANYL [Concomitant]
     Active Substance: CLOBAZAM
     Route: 065
  5. PRIMPERAN [Concomitant]
     Active Substance: METOCLOPRAMIDE HYDROCHLORIDE
  6. KADCYLA [Suspect]
     Active Substance: ADO-TRASTUZUMAB EMTANSINE
     Indication: BREAST CANCER METASTATIC
     Route: 042
     Dates: start: 20190102
  7. SEROPLEX [Concomitant]
     Active Substance: ESCITALOPRAM OXALATE
     Route: 065
  8. ESOMEPRAZOLE. [Concomitant]
     Active Substance: ESOMEPRAZOLE MAGNESIUM
  9. DONORMYL [DOXYLAMINE SUCCINATE] [Concomitant]
     Active Substance: DOXYLAMINE SUCCINATE

REACTIONS (2)
  - Vogt-Koyanagi-Harada disease [Not Recovered/Not Resolved]
  - Uveitis [Not Recovered/Not Resolved]

NARRATIVE: CASE EVENT DATE: 201905
